FAERS Safety Report 9278939 (Version 2)
Quarter: 2013Q2

REPORT INFORMATION
  Report Type: Spontaneous
  Country: HR (occurrence: HR)
  Receive Date: 20130508
  Receipt Date: 20130603
  Transmission Date: 20140414
  Serious: No
  Sender: FDA-Public Use
  Company Number: HR-JNJFOC-20130414083

PATIENT
  Age: 26 Year
  Sex: Female

DRUGS (4)
  1. RISPOLEPT CONSTA [Suspect]
     Indication: SCHIZOPHRENIA
     Route: 030
     Dates: start: 200809, end: 2009
  2. RISPOLEPT CONSTA [Suspect]
     Indication: SCHIZOPHRENIA
     Route: 030
     Dates: start: 2009
  3. RISPOLEPT [Suspect]
     Indication: SCHIZOPHRENIA
     Route: 048
     Dates: start: 200809, end: 2009
  4. LEPONEX [Suspect]
     Indication: PRODUCT USED FOR UNKNOWN INDICATION
     Dosage: 1 AND 1/2 TABLET IN THE EVENING
     Route: 065

REACTIONS (4)
  - Obsessive-compulsive personality disorder [Recovered/Resolved]
  - Pollakiuria [Recovered/Resolved]
  - Treatment noncompliance [Recovered/Resolved]
  - Poor sanitation [Recovered/Resolved]
